FAERS Safety Report 23618458 (Version 1)
Quarter: 2024Q1

REPORT INFORMATION
  Report Type: Spontaneous
  Country: US (occurrence: US)
  Receive Date: 20240311
  Receipt Date: 20240311
  Transmission Date: 20240410
  Serious: Yes (Other)
  Sender: FDA-Public Use
  Company Number: US-STERISCIENCE B.V.-2024-ST-000234

PATIENT
  Age: 27 Year
  Sex: Male

DRUGS (11)
  1. MYCOPHENOLATE MOFETIL [Suspect]
     Active Substance: MYCOPHENOLATE MOFETIL
     Indication: Systemic lupus erythematosus
     Dosage: UNK
     Route: 065
  2. MYCOPHENOLATE MOFETIL [Suspect]
     Active Substance: MYCOPHENOLATE MOFETIL
     Indication: Acquired amegakaryocytic thrombocytopenia
  3. METHOTREXATE [Suspect]
     Active Substance: METHOTREXATE
     Indication: Systemic lupus erythematosus
     Dosage: UNK
     Route: 065
  4. METHOTREXATE [Suspect]
     Active Substance: METHOTREXATE
     Indication: Acquired amegakaryocytic thrombocytopenia
  5. ELTROMBOPAG [Suspect]
     Active Substance: ELTROMBOPAG
     Indication: Systemic lupus erythematosus
     Dosage: UNK
     Route: 065
  6. ELTROMBOPAG [Suspect]
     Active Substance: ELTROMBOPAG
     Indication: Acquired amegakaryocytic thrombocytopenia
  7. Immunoglobulin [Concomitant]
     Indication: Immune thrombocytopenia
     Dosage: UNK
     Route: 065
  8. RITUXIMAB [Concomitant]
     Active Substance: RITUXIMAB
     Indication: Systemic lupus erythematosus
     Dosage: UNK
     Route: 065
  9. RITUXIMAB [Concomitant]
     Active Substance: RITUXIMAB
     Indication: Acquired amegakaryocytic thrombocytopenia
  10. HYDROXYCHLOROQUINE [Concomitant]
     Active Substance: HYDROXYCHLOROQUINE
     Indication: Systemic lupus erythematosus
     Dosage: UNK
     Route: 065
  11. HYDROXYCHLOROQUINE [Concomitant]
     Active Substance: HYDROXYCHLOROQUINE
     Indication: Acquired amegakaryocytic thrombocytopenia

REACTIONS (2)
  - Disease progression [Unknown]
  - Drug ineffective for unapproved indication [Unknown]
